FAERS Safety Report 21346294 (Version 3)
Quarter: 2022Q4

REPORT INFORMATION
  Report Type: Report from Study
  Country: BR (occurrence: BR)
  Receive Date: 20220917
  Receipt Date: 20221224
  Transmission Date: 20230113
  Serious: Yes (Hospitalization)
  Sender: FDA-Public Use
  Company Number: BR-NOVARTISPH-NVSC2022BR184026

PATIENT
  Age: 38 Year
  Sex: Male

DRUGS (2)
  1. TAFINLAR [Suspect]
     Active Substance: DABRAFENIB MESYLATE
     Indication: Chronic myeloid leukaemia
     Dosage: 75 MG
     Route: 065
     Dates: start: 2020
  2. MEKINIST [Suspect]
     Active Substance: TRAMETINIB DIMETHYL SULFOXIDE
     Indication: Chronic myeloid leukaemia
     Dosage: UNK
     Route: 065
     Dates: start: 2020

REACTIONS (10)
  - Abdominal pain [Recovered/Resolved]
  - Cerebral haemorrhage [Unknown]
  - Pyrexia [Not Recovered/Not Resolved]
  - Pyrexia [Recovered/Resolved]
  - Lymphadenopathy [Not Recovered/Not Resolved]
  - Malaise [Recovered/Resolved]
  - Skin lesion [Unknown]
  - Neoplasm [Unknown]
  - Product use in unapproved indication [Unknown]
  - Asthenia [Not Recovered/Not Resolved]

NARRATIVE: CASE EVENT DATE: 20220402
